FAERS Safety Report 7016109-2 (Version None)
Quarter: 2010Q3

REPORT INFORMATION
  Report Type: 
  Country: None (occurrence: None)
  Receive Date: 20100923
  Receipt Date: 20100915
  Transmission Date: 20110219
  Serious: Yes (Death)
  Sender: FDA-Public Use
  Company Number: FABR-12264

PATIENT
  Age: 55 Year
  Sex: Male
  Weight: 53 kg

DRUGS (6)
  1. FABRAZYME [Suspect]
     Indication: FABRY'S DISEASE
     Dosage: 50 MG, Q2W, INTRAVENOUS
     Route: 042
     Dates: start: 20070822, end: 20071031
  2. BETA BLOCKER (NOT OTHERWIDE SPECIFIED) [Concomitant]
  3. FUROSEMIDE [Concomitant]
  4. SPIRONOLACTONE [Concomitant]
  5. UBIDECARENONE (UBIDECARENONE) [Concomitant]
  6. CARPERITIDE (CARPERITIDE) [Concomitant]

REACTIONS (6)
  - ALANINE AMINOTRANSFERASE INCREASED [None]
  - ASPARTATE AMINOTRANSFERASE INCREASED [None]
  - CARDIAC FAILURE [None]
  - DISEASE PROGRESSION [None]
  - FABRY'S DISEASE [None]
  - HEPATIC FUNCTION ABNORMAL [None]
